FAERS Safety Report 23719648 (Version 1)
Quarter: 2024Q2

REPORT INFORMATION
  Report Type: Spontaneous
  Country: US (occurrence: US)
  Receive Date: 20240408
  Receipt Date: 20240408
  Transmission Date: 20240716
  Serious: No
  Sender: FDA-Public Use
  Company Number: US-UPSHER-SMITH LABORATORIES, LLC-2023USL00772

PATIENT
  Age: 75 Year
  Sex: Female
  Weight: 64.853 kg

DRUGS (2)
  1. PREVALITE [Suspect]
     Active Substance: CHOLESTYRAMINE
     Indication: Blood cholesterol increased
     Dosage: 1 SCOOP (4 GRAMS), 2X/DAY (AT NIGHT TIME AND DURING THE DAY)
  2. UNSPECIFIED ROSACEA CREAM [Concomitant]

REACTIONS (2)
  - Dyspepsia [Recovered/Resolved]
  - Product preparation issue [Not Recovered/Not Resolved]

NARRATIVE: CASE EVENT DATE: 20230801
